FAERS Safety Report 24288546 (Version 1)
Quarter: 2024Q3

REPORT INFORMATION
  Report Type: Spontaneous
  Country: PL (occurrence: PL)
  Receive Date: 20240906
  Receipt Date: 20240906
  Transmission Date: 20241016
  Serious: Yes (Hospitalization)
  Sender: ABBVIE
  Company Number: None

PATIENT
  Age: 64 Year
  Sex: Male
  Weight: 76 kg

DRUGS (2)
  1. IMBRUVICA [Suspect]
     Active Substance: IBRUTINIB
     Indication: Chronic myeloid leukaemia
     Dosage: 40 MG 1 X 2 WEEK
     Route: 048
     Dates: start: 20200702, end: 20200716
  2. IMBRUVICA [Suspect]
     Active Substance: IBRUTINIB
     Indication: Chronic myeloid leukaemia
     Route: 048
     Dates: start: 20200707, end: 20200730

REACTIONS (1)
  - Liver function test [Recovering/Resolving]

NARRATIVE: CASE EVENT DATE: 20200728
